FAERS Safety Report 4553517-3 (Version None)
Quarter: 2004Q4

REPORT INFORMATION
  Report Type: 
  Country: None (occurrence: None)
  Receive Date: 20041227
  Receipt Date: 20041026
  Transmission Date: 20050328
  Serious: No
  Sender: FDA-Public Use
  Company Number: 04P-163-0278640-00

PATIENT
  Age: 50 Year
  Sex: Female
  Weight: 74.8435 kg

DRUGS (4)
  1. HUMIRA [Suspect]
     Indication: RHEUMATOID ARTHRITIS
     Dosage: 40 MG, 1 IN 2 WK, SUBCUTANEOUS
     Route: 058
     Dates: start: 20030801, end: 20040913
  2. METHOTREXATE SODIUM [Concomitant]
  3. IBUPROFEN [Concomitant]
  4. VICODIN [Concomitant]

REACTIONS (6)
  - ERYTHEMA [None]
  - JOINT WARMTH [None]
  - MUSCULOSKELETAL STIFFNESS [None]
  - MYALGIA [None]
  - NODULE ON EXTREMITY [None]
  - STAPHYLOCOCCAL INFECTION [None]
